FAERS Safety Report 5117892-3 (Version None)
Quarter: 2006Q3

REPORT INFORMATION
  Report Type: 
  Country: None (occurrence: None)
  Receive Date: 20060926
  Receipt Date: 20060914
  Transmission Date: 20061208
  Serious: Yes (Death, Other)
  Sender: FDA-Public Use
  Company Number: IN200609003007

PATIENT
  Age: 65 Year
  Sex: Male

DRUGS (4)
  1. HUMALOG MIX 75/25 [Suspect]
     Indication: DIABETES MELLITUS
     Dosage: SEE IMAGE
     Route: 058
     Dates: start: 20060909, end: 20060910
  2. HUMALOG MIX 75/25 [Suspect]
     Indication: DIABETES MELLITUS
     Dosage: SEE IMAGE
     Route: 058
     Dates: start: 20060909, end: 20060910
  3. HUMAN MIXTARD [Concomitant]
  4. CARDIAC THERAPY [Concomitant]

REACTIONS (2)
  - HAEMATEMESIS [None]
  - SUDDEN CARDIAC DEATH [None]
